FAERS Safety Report 23982984 (Version 1)
Quarter: 2024Q2

REPORT INFORMATION
  Report Type: Spontaneous
  Country: US (occurrence: US)
  Receive Date: 20240617
  Receipt Date: 20240617
  Transmission Date: 20240716
  Serious: No
  Sender: FDA-Public Use
  Company Number: US-SANOFI-02086204

PATIENT
  Sex: Male

DRUGS (1)
  1. DUPIXENT [Suspect]
     Active Substance: DUPILUMAB
     Dosage: UNK

REACTIONS (5)
  - Fatigue [Recovered/Resolved]
  - Influenza [Unknown]
  - Abdominal discomfort [Unknown]
  - Decreased appetite [Unknown]
  - Visual acuity reduced [Unknown]
